FAERS Safety Report 9618613 (Version 8)
Quarter: 2014Q1

REPORT INFORMATION
  Report Type: Spontaneous
  Country: US (occurrence: US)
  Receive Date: 20131014
  Receipt Date: 20140303
  Transmission Date: 20141002
  Serious: No
  Sender: FDA-Public Use
  Company Number: US-PFIZER INC-2013289154

PATIENT
  Age: 59 Year
  Sex: Male
  Weight: 90.7 kg

DRUGS (10)
  1. SUTENT [Suspect]
     Indication: RENAL CELL CARCINOMA
     Dosage: 50 MG, ONCE DAILY (FOR 4WEEKS AND OFF FOR 2 WEEKS)
     Route: 048
     Dates: start: 20130923, end: 2013
  2. SUTENT [Suspect]
     Dosage: 37.5 MG, DAILY
     Dates: end: 201401
  3. ASPIRIN [Concomitant]
     Dosage: UNK
  4. OMEPRAZOLE [Concomitant]
     Dosage: UNK
  5. TOPROL XL [Concomitant]
     Indication: BLOOD PRESSURE ABNORMAL
     Dosage: 25 MG, 1X/DAY
  6. ZOCOR [Concomitant]
     Indication: BLOOD CHOLESTEROL ABNORMAL
     Dosage: 20 MG, DAILY
  7. RESTORIL [Concomitant]
     Dosage: UNK
  8. FERROUS SULFATE [Concomitant]
     Dosage: UNK
  9. HYDROCODONE [Concomitant]
     Dosage: UNK
  10. ZOFRAN [Concomitant]
     Dosage: UNK

REACTIONS (20)
  - Asthenia [Not Recovered/Not Resolved]
  - Fatigue [Unknown]
  - Abdominal discomfort [Unknown]
  - Oral pain [Not Recovered/Not Resolved]
  - Dysgeusia [Unknown]
  - Skin disorder [Unknown]
  - Platelet count decreased [Recovered/Resolved]
  - Skin exfoliation [Recovered/Resolved]
  - Vomiting [Unknown]
  - Nausea [Unknown]
  - Rash [Unknown]
  - Stomatitis [Unknown]
  - Asthenia [Recovering/Resolving]
  - Malaise [Recovering/Resolving]
  - Yellow skin [Recovering/Resolving]
  - Chills [Recovering/Resolving]
  - Petechiae [Recovering/Resolving]
  - Disease progression [Unknown]
  - Renal cell carcinoma [Unknown]
  - Weight increased [Unknown]
